FAERS Safety Report 18057509 (Version 8)
Quarter: 2022Q2

REPORT INFORMATION
  Report Type: Report from Study
  Country: US (occurrence: None)
  Receive Date: 20200723
  Receipt Date: 20220525
  Transmission Date: 20220721
  Serious: Yes (Hospitalization, Other)
  Sender: FDA-Public Use
  Company Number: US-ROCHE-2642069

PATIENT
  Age: 66 Year
  Sex: Female
  Weight: 60.1 kg

DRUGS (15)
  1. ATEZOLIZUMAB [Suspect]
     Active Substance: ATEZOLIZUMAB
     Indication: Endometrial cancer
     Dosage: LAST DOSE PRIOR TO EVENT ONSET ON 01/OCT/2020
     Route: 041
     Dates: start: 20200709
  2. BEVACIZUMAB [Suspect]
     Active Substance: BEVACIZUMAB
     Indication: Endometrial cancer
     Route: 065
     Dates: start: 20200709
  3. RUCAPARIB [Suspect]
     Active Substance: RUCAPARIB
     Indication: Endometrial cancer
     Route: 048
     Dates: start: 20200709
  4. COMPAZINE [Concomitant]
     Active Substance: PROCHLORPERAZINE MALEATE
     Indication: Nausea
     Dosage: 10 MG PO Q6H PRN
     Route: 048
     Dates: start: 20190401
  5. ZOFRAN [Concomitant]
     Active Substance: ONDANSETRON HYDROCHLORIDE
     Indication: Nausea
     Dosage: 4 MG UNDER THE TONGUE Q8H PRN
     Route: 060
     Dates: start: 202004
  6. PRILOSEC [Concomitant]
     Active Substance: OMEPRAZOLE MAGNESIUM
     Indication: Gastrooesophageal reflux disease
     Dosage: 20 MG PO DAILY
     Route: 048
     Dates: start: 20190418
  7. LEVOTHYROXINE [Concomitant]
     Active Substance: LEVOTHYROXINE
     Indication: Hypothyroidism
     Dosage: 75 MCG PO DAILY ONGOING: YES
     Route: 048
     Dates: start: 1990
  8. CHOLECALCIFEROL [Concomitant]
     Active Substance: CHOLECALCIFEROL
     Indication: Vitamin D deficiency
     Dosage: 2,000-4000 UNITS PO QDAY ONGOING: YES
     Route: 048
     Dates: start: 2010
  9. TYLENOL [Concomitant]
     Active Substance: ACETAMINOPHEN
     Indication: Pain
     Dosage: 1,000 MG PO QDAY PRN ONGOING: YES
     Route: 048
     Dates: start: 20200623
  10. METFORMIN [Concomitant]
     Active Substance: METFORMIN HYDROCHLORIDE
     Indication: Glucose tolerance impaired
     Dosage: 500 MG TABLET PO QDAY ONGOING: YES
     Dates: start: 20200615
  11. MILK OF MAGNESIA [Concomitant]
     Active Substance: MAGNESIUM HYDROXIDE
     Indication: Constipation
     Dosage: 15 ML PO QDAY PRN ONGOING: YES
     Route: 048
     Dates: start: 20181101
  12. ZYPREXA [Concomitant]
     Active Substance: OLANZAPINE
     Indication: Nausea
     Dosage: 5 MG TABLET PO NIGHTLY FOR 3 DAYS AFTER CHEMO ONGOING: YES
     Route: 048
     Dates: start: 20190516
  13. D-MANNOSE [Concomitant]
     Dosage: 1 CAPSULE PO QDAY
     Route: 048
  14. DULCOLAX STOOL SOFTENER [Concomitant]
     Active Substance: DOCUSATE SODIUM
     Indication: Constipation
     Dosage: ONGOING YES 5 MG ENTERIC TAB PO QDAY
     Route: 048
     Dates: start: 201811
  15. TYLENOL EXTRA STRENGTH [Concomitant]
     Active Substance: ACETAMINOPHEN
     Indication: Pain
     Dosage: 1,000 MG PO QDAY PRN ONGOING: YES
     Dates: start: 20200623

REACTIONS (5)
  - Small intestinal obstruction [Recovered/Resolved]
  - Abdominal pain [Recovered/Resolved]
  - Obstruction gastric [Recovered/Resolved]
  - Abdominal pain [Recovered/Resolved]
  - Abdominal pain [Recovered/Resolved]

NARRATIVE: CASE EVENT DATE: 20200711
